FAERS Safety Report 16251306 (Version 6)
Quarter: 2019Q3

REPORT INFORMATION
  Report Type: Spontaneous
  Country: KR (occurrence: KR)
  Receive Date: 20190429
  Receipt Date: 20190725
  Transmission Date: 20191004
  Serious: Yes (Death, Hospitalization, Other)
  Sender: FDA-Public Use
  Company Number: KR-009507513-1904KOR010644

PATIENT
  Sex: Male

DRUGS (46)
  1. ULTRACET [Concomitant]
     Active Substance: ACETAMINOPHEN\TRAMADOL HYDROCHLORIDE
     Dosage: DOSE 1, TIMES 1
     Route: 048
     Dates: start: 20190626, end: 20190626
  2. NORZYME [Concomitant]
     Dosage: QUANTITY 2, DAYS 1
     Route: 048
     Dates: start: 20190430, end: 20190430
  3. MORPHINE HCL JEIL [Concomitant]
     Dosage: QUANTITY 1, DAYS 5
     Dates: start: 20190408, end: 20190415
  4. MORPHINE HCL JEIL [Concomitant]
     Dosage: 0.5 MILLILITER;QUANTITY 1, DAYS 1
     Dates: start: 20190503, end: 20190503
  5. PETHIDINE HCL HANA [Concomitant]
     Dosage: DOSE 1, TIMES 11
     Dates: start: 20190615, end: 20190621
  6. SODIUM CHLORIDE. [Concomitant]
     Active Substance: SODIUM CHLORIDE
     Dosage: 50 ML; QUANTITY: 2 ; TIMES: 2
     Dates: start: 20190621, end: 20190625
  7. SODIUM CHLORIDE. [Concomitant]
     Active Substance: SODIUM CHLORIDE
     Dosage: 1000 ML; QUANTITY: 1; TIMES: 2
     Dates: start: 20190615, end: 20190619
  8. SODIUM CHLORIDE. [Concomitant]
     Active Substance: SODIUM CHLORIDE
     Dosage: 50 ML; QUANTITY:1; TIMES: 3
     Dates: start: 20190620, end: 20190621
  9. LANSTON [Concomitant]
     Active Substance: LANSOPRAZOLE
     Dosage: QUANTITY 1, DAYS 29
     Route: 048
     Dates: start: 20190408, end: 20190417
  10. NORZYME [Concomitant]
     Dosage: QUANTITY 1, DAYS 1
     Route: 048
     Dates: start: 20190408, end: 20190408
  11. NORZYME [Concomitant]
     Dosage: QUANTITY 3, DAYS 26
     Route: 048
     Dates: start: 20190410, end: 20190417
  12. KASHUT [Concomitant]
     Dosage: QUANTITY 2, DAYS 1
     Dates: start: 20190408, end: 20190408
  13. SODIUM CHLORIDE. [Concomitant]
     Active Substance: SODIUM CHLORIDE
     Dosage: 50 ML; QUANTITY: 1; DAYS: 1
     Dates: start: 20190501, end: 20190501
  14. SODIUM CHLORIDE. [Concomitant]
     Active Substance: SODIUM CHLORIDE
     Dosage: 50 ML; QUANTITY: 3; TIMES: 1
     Dates: start: 20190616, end: 20190616
  15. LANSTON [Concomitant]
     Active Substance: LANSOPRAZOLE
     Dosage: 30 MILLIGRAM; QUANTITY 1, DAYS 25
     Route: 048
     Dates: start: 20190430
  16. NORZYME [Concomitant]
     Dosage: DOSE 2, TIMES 6
     Route: 048
     Dates: start: 20190614, end: 20190703
  17. TARGIN [Concomitant]
     Active Substance: NALOXONE HYDROCHLORIDE\OXYCODONE HYDROCHLORIDE
     Dosage: QUANTITY 1, DAYS 2
     Route: 048
     Dates: start: 20190408, end: 20190408
  18. TARGIN [Concomitant]
     Active Substance: NALOXONE HYDROCHLORIDE\OXYCODONE HYDROCHLORIDE
     Dosage: QUANTITY 2, DAYS 2
     Route: 048
     Dates: start: 20190409, end: 20190410
  19. PETHIDINE HCL HANA [Concomitant]
     Dosage: DOSE 2, TIMES 8
     Dates: start: 20190616, end: 20190704
  20. SODIUM CHLORIDE. [Concomitant]
     Active Substance: SODIUM CHLORIDE
     Dosage: 50 ML; QUANTITY: 4; TIMES: 12
     Dates: start: 20190621, end: 20190703
  21. PETHIDINE HCL HANA [Concomitant]
     Dosage: DOSE 3, TIMES 5
     Dates: start: 20190627, end: 20190703
  22. SODIUM CHLORIDE. [Concomitant]
     Active Substance: SODIUM CHLORIDE
     Dosage: QUANTITY 1; DAYS: 1
     Dates: start: 20190410
  23. DEXTROSE (+) SODIUM CHLORIDE [Concomitant]
     Dosage: 1000ML; QUANTITY: 1; DAYS: 3
     Dates: start: 20190408, end: 20190409
  24. KEYTRUDA [Suspect]
     Active Substance: PEMBROLIZUMAB
     Indication: BILE DUCT CANCER
     Dosage: QUANTITY 2, DAYS1
     Dates: start: 20190410, end: 20190410
  25. NORZYME [Concomitant]
     Dosage: DOSE 3, TIMES 23
     Route: 048
     Dates: start: 20190628, end: 20190704
  26. MORPHINE HCL JEIL [Concomitant]
     Dosage: QUANTITY 1, DAYS 11
     Dates: start: 20190408, end: 20190417
  27. PETHIDINE HCL HANA [Concomitant]
     Dosage: DOSE 4, TIMES 6
     Dates: start: 20190621, end: 20190630
  28. SODIUM CHLORIDE. [Concomitant]
     Active Substance: SODIUM CHLORIDE
     Dosage: 50 ML; QUANTITY: 1; TIMES: 7
     Dates: start: 20190615, end: 20190619
  29. SODIUM CHLORIDE. [Concomitant]
     Active Substance: SODIUM CHLORIDE
     Dosage: 50 ML; QUANTITY: 2; TIMES: 8
     Dates: start: 20190618, end: 20190625
  30. ULTRACET [Concomitant]
     Active Substance: ACETAMINOPHEN\TRAMADOL HYDROCHLORIDE
     Dosage: QUANTITY 1, DAYS 2
     Route: 048
     Dates: start: 20190408, end: 20190415
  31. ULTRACET [Concomitant]
     Active Substance: ACETAMINOPHEN\TRAMADOL HYDROCHLORIDE
     Dosage: QUANTITY 2, DAYS 27
     Route: 048
     Dates: start: 20190409, end: 20190417
  32. NORZYME [Concomitant]
     Dosage: QUANTITY 3, DAYS 24
     Route: 048
     Dates: start: 20190501
  33. MORPHINE HCL JEIL [Concomitant]
     Dosage: 0.5 MILLILITER; QUANTITY 2, DAYS 1
     Dates: start: 20190501, end: 20190501
  34. LANSTON [Concomitant]
     Active Substance: LANSOPRAZOLE
     Dosage: DOSE 1, TIMES 7
     Route: 048
     Dates: start: 20190614, end: 20190630
  35. NORZYME [Concomitant]
     Dosage: QUANTITY 2, DAYS 2
     Route: 048
     Dates: start: 20190409, end: 20190415
  36. NORZYME [Concomitant]
     Dosage: DOSE 1, TIMES 2
     Route: 048
     Dates: start: 20190626, end: 20190627
  37. MORPHINE HCL JEIL [Concomitant]
     Dosage: QUANTITY 2, DAYS 5
     Dates: start: 20190409, end: 20190416
  38. SODIUM CHLORIDE. [Concomitant]
     Active Substance: SODIUM CHLORIDE
     Dosage: 500 ML; QUANTITY:1; TIMES: 2
     Dates: start: 20190617, end: 20190617
  39. SODIUM CHLORIDE. [Concomitant]
     Active Substance: SODIUM CHLORIDE
     Dosage: 20 ML; QUANTITY: 1; TIMES: 1
     Dates: start: 20190616, end: 20190616
  40. SODIUM CHLORIDE. [Concomitant]
     Active Substance: SODIUM CHLORIDE
     Dosage: 50 ML; QUANTITY:2; TIMES: 3
     Dates: start: 20190620, end: 20190704
  41. KEYTRUDA [Suspect]
     Active Substance: PEMBROLIZUMAB
     Dosage: QUANTITY 2, DAYS1
     Dates: start: 20190501, end: 20190501
  42. KEYTRUDA [Suspect]
     Active Substance: PEMBROLIZUMAB
     Dosage: DOSE 2, DAYS 1
     Dates: start: 20190615, end: 20190615
  43. ULTRACET [Concomitant]
     Active Substance: ACETAMINOPHEN\TRAMADOL HYDROCHLORIDE
     Dosage: QUANTITY 2, DAYS 25
     Route: 048
     Dates: start: 20190430, end: 20190509
  44. PETHIDINE HCL HANA [Concomitant]
     Dosage: QUANTITY 1, DAYS 2
     Dates: start: 20190409, end: 20190412
  45. PETHIDINE HCL HANA [Concomitant]
     Dosage: QUANTITY 1, DAYS 1
     Dates: start: 20190412, end: 20190412
  46. PETHIDINE HCL HANA [Concomitant]
     Dosage: DOSE 1, TIMES 1
     Dates: start: 20190617, end: 20190617

REACTIONS (6)
  - Abdominal pain [Unknown]
  - Death [Fatal]
  - Adverse event [Unknown]
  - Product use in unapproved indication [Unknown]
  - Haematuria [Unknown]
  - Adverse event [Unknown]

NARRATIVE: CASE EVENT DATE: 2019
